FAERS Safety Report 9745802 (Version 2)
Quarter: 2014Q1

REPORT INFORMATION
  Report Type: Spontaneous
  Country: JP (occurrence: JP)
  Receive Date: 20131211
  Receipt Date: 20140305
  Transmission Date: 20141002
  Serious: Yes (Other)
  Sender: FDA-Public Use
  Company Number: JP-AMGEN-JPNSP2013086852

PATIENT
  Age: 70 Year
  Sex: Male
  Weight: 45 kg

DRUGS (4)
  1. VECTIBIX [Suspect]
     Indication: COLON CANCER
     Dosage: 300 MG, Q2WK
     Route: 041
     Dates: start: 20130404, end: 20131022
  2. ELPLAT [Suspect]
     Indication: COLON CANCER
     Dosage: 130 MG, Q2WK
     Route: 041
     Dates: start: 20130404, end: 20130924
  3. 5 FU [Suspect]
     Indication: COLON CANCER
     Dosage: 610 MG, Q2WK
     Route: 040
     Dates: start: 20130404, end: 20130924
  4. 5 FU [Suspect]
     Dosage: 3660 MG, Q2WK
     Route: 041
     Dates: start: 20130404, end: 20130924

REACTIONS (1)
  - Interstitial lung disease [Not Recovered/Not Resolved]
